FAERS Safety Report 14030520 (Version 1)
Quarter: 2017Q4

REPORT INFORMATION
  Report Type: Spontaneous
  Country: US (occurrence: US)
  Receive Date: 20171002
  Receipt Date: 20171002
  Transmission Date: 20180321
  Serious: No
  Sender: FDA-Public Use
  Company Number: US-MAYNE PHARMA-2017MYN000957

PATIENT
  Sex: Male

DRUGS (3)
  1. PERCOCET 5/325 [Concomitant]
     Indication: PAIN
     Dosage: UNK UNK, UNKNOWN
     Route: 065
  2. DILAUDID [Concomitant]
     Active Substance: HYDROMORPHONE HYDROCHLORIDE
     Indication: PAIN
     Dosage: UNK UNK, UNKNOWN
     Route: 042
  3. FENTANYL. [Suspect]
     Active Substance: FENTANYL
     Indication: PAIN
     Dosage: UNK UNK, UNKNOWN
     Route: 065

REACTIONS (3)
  - Insomnia [Unknown]
  - Drug withdrawal syndrome [Unknown]
  - Decreased appetite [Unknown]
